FAERS Safety Report 7291345-9 (Version None)
Quarter: 2011Q1

REPORT INFORMATION
  Report Type: 
  Country: None (occurrence: None)
  Receive Date: 20110214
  Receipt Date: 20110210
  Transmission Date: 20110831
  Serious: Yes (Other)
  Sender: FDA-Public Use
  Company Number: A0912905A

PATIENT
  Sex: Female

DRUGS (5)
  1. HYDROCHLOROTHIAZIDE [Concomitant]
  2. REQUIP XL [Suspect]
     Indication: PARKINSON'S DISEASE
     Route: 048
     Dates: start: 20090101
  3. BACILLUS CALMETTE-GUERIN [Concomitant]
  4. EFFEXOR [Concomitant]
  5. SIMVASTATIN [Concomitant]

REACTIONS (3)
  - CONSTIPATION [None]
  - DYSGRAPHIA [None]
  - SOMNOLENCE [None]
